FAERS Safety Report 9702409 (Version 1)
Quarter: 2013Q4

REPORT INFORMATION
  Report Type: Spontaneous
  Country: IN (occurrence: IN)
  Receive Date: 20131121
  Receipt Date: 20131121
  Transmission Date: 20140711
  Serious: Yes (Other)
  Sender: FDA-Public Use
  Company Number: PHHY2013IN133120

PATIENT
  Age: 8 Year
  Sex: Male

DRUGS (8)
  1. GEMCITABINE [Suspect]
     Indication: HODGKIN^S DISEASE STAGE III
     Dosage: 800 MG/M2, UNK
  2. IFOSFAMIDE [Suspect]
     Indication: HODGKIN^S DISEASE STAGE III
     Dosage: 2000 MG/M2, UNK
  3. VINORELBINE [Suspect]
     Indication: HODGKIN^S DISEASE STAGE III
     Dosage: 20 MG/M2, UNK
  4. PREDNISOLONE [Suspect]
     Indication: HODGKIN^S DISEASE STAGE III
     Dosage: 2 MG/KG, UNK
  5. DOXORUBICIN [Suspect]
     Indication: HODGKIN^S DISEASE STAGE III
  6. BLEOMYCIN [Suspect]
     Indication: HODGKIN^S DISEASE STAGE III
  7. VINBLASTINE [Suspect]
     Indication: HODGKIN^S DISEASE STAGE III
  8. DACARBAZINE [Suspect]
     Indication: HODGKIN^S DISEASE STAGE III

REACTIONS (4)
  - Rash maculo-papular [Recovered/Resolved]
  - Rash pruritic [Recovered/Resolved]
  - Hodgkin^s disease stage III [Unknown]
  - Disease progression [Unknown]
